FAERS Safety Report 9224334 (Version 1)
Quarter: 2013Q1

REPORT INFORMATION
  Report Type: Spontaneous
  Country: US (occurrence: None)
  Receive Date: 20120917
  Receipt Date: 20120917
  Transmission Date: 20140127
  Serious: Yes (Other)
  Sender: FDA-Public Use
  Company Number: 2011SP050788

PATIENT
  Age: 39 Year
  Sex: Female
  Weight: 80.29 kg

DRUGS (1)
  1. IMPLANON [Suspect]
     Indication: CONTRACEPTION
     Dates: start: 20090112

REACTIONS (2)
  - Thrombosis [None]
  - Menorrhagia [None]
